FAERS Safety Report 6845328-0 (Version None)
Quarter: 2010Q3

REPORT INFORMATION
  Report Type: 
  Country: None (occurrence: None)
  Receive Date: 20100715
  Receipt Date: 20070820
  Transmission Date: 20110219
  Serious: No
  Sender: FDA-Public Use
  Company Number: US-PFIZER INC-2007069998

PATIENT
  Sex: Female
  Weight: 109.1 kg

DRUGS (6)
  1. CHANTIX [Suspect]
     Indication: SMOKING CESSATION THERAPY
     Dates: start: 20070727, end: 20070813
  2. PLAVIX [Concomitant]
  3. LOTREL [Concomitant]
     Indication: HYPERTENSION
  4. ZOLOFT [Concomitant]
     Indication: DEPRESSION
  5. MOTRIN [Concomitant]
     Indication: ARTHRALGIA
  6. TRILEPTAL [Concomitant]
     Indication: BIPOLAR DISORDER

REACTIONS (3)
  - ABDOMINAL PAIN UPPER [None]
  - CHEST PAIN [None]
  - FLATULENCE [None]
